FAERS Safety Report 26006687 (Version 1)
Quarter: 2025Q4

REPORT INFORMATION
  Report Type: Spontaneous
  Country: US (occurrence: None)
  Receive Date: 20251105
  Receipt Date: 20251105
  Transmission Date: 20260117
  Serious: No
  Sender: FDA-CTU
  Company Number: None

PATIENT
  Age: 7 Week
  Sex: Female
  Weight: 2.5 kg

DRUGS (1)
  1. NIRSEVIMAB-ALIP [Suspect]
     Active Substance: NIRSEVIMAB-ALIP
     Dosage: 50 MG ONCE ORAL
     Route: 048

REACTIONS (2)
  - Wrong technique in product usage process [None]
  - Incorrect route of product administration [None]

NARRATIVE: CASE EVENT DATE: 20251024
